FAERS Safety Report 6834442-1 (Version None)
Quarter: 2010Q3

REPORT INFORMATION
  Report Type: 
  Country: None (occurrence: None)
  Receive Date: 20100712
  Receipt Date: 20070420
  Transmission Date: 20110219
  Serious: No
  Sender: FDA-Public Use
  Company Number: US-PFIZER INC-2007033690

PATIENT
  Sex: Male
  Weight: 118 kg

DRUGS (10)
  1. CHANTIX [Suspect]
     Indication: SMOKING CESSATION THERAPY
     Route: 048
     Dates: start: 20070314
  2. SPIRIVA [Concomitant]
     Route: 055
  3. LOPRESSOR [Concomitant]
  4. LISINOPRIL [Concomitant]
  5. CRESTOR [Concomitant]
  6. PLAVIX [Concomitant]
  7. NORVASC [Concomitant]
  8. NITROGLYCERIN [Concomitant]
  9. ACETYLSALICYLIC ACID [Concomitant]
  10. MULTI-VITAMINS [Concomitant]

REACTIONS (2)
  - IRRITABILITY [None]
  - MOOD ALTERED [None]
